FAERS Safety Report 7616752-3 (Version None)
Quarter: 2011Q3

REPORT INFORMATION
  Report Type: 
  Country: None (occurrence: None)
  Receive Date: 20110718
  Receipt Date: 20110708
  Transmission Date: 20111222
  Serious: Yes (Hospitalization, Other)
  Sender: FDA-Public Use
  Company Number: US-BIOGENIDEC-2008BI017763

PATIENT
  Sex: Female
  Weight: 51 kg

DRUGS (7)
  1. AVONEX [Suspect]
     Indication: MULTIPLE SCLEROSIS
     Route: 030
     Dates: start: 20080228
  2. AMITIZA [Concomitant]
     Indication: GASTRIC DISORDER
  3. AVONEX [Suspect]
     Route: 030
  4. MIRALAX [Concomitant]
     Indication: PRODUCT USED FOR UNKNOWN INDICATION
  5. AMBIEN [Concomitant]
     Indication: PRODUCT USED FOR UNKNOWN INDICATION
  6. CLONAZEPAM [Concomitant]
     Indication: PRODUCT USED FOR UNKNOWN INDICATION
  7. BUSPAR [Concomitant]
     Indication: PRODUCT USED FOR UNKNOWN INDICATION

REACTIONS (10)
  - GASTRIC CANCER [None]
  - FAECAL INCONTINENCE [None]
  - RENAL CANCER [None]
  - PERONEAL NERVE PALSY [None]
  - CONFUSIONAL STATE [None]
  - OXYGEN SATURATION DECREASED [None]
  - CARCINOID TUMOUR OF THE APPENDIX [None]
  - HYPOGLYCAEMIA [None]
  - CONVULSION [None]
  - HALLUCINATION [None]
